FAERS Safety Report 4343575-3 (Version None)
Quarter: 2004Q2

REPORT INFORMATION
  Report Type: 
  Country: None (occurrence: None)
  Receive Date: 20040419
  Receipt Date: 20040406
  Transmission Date: 20050107
  Serious: Yes (Death, Life-Threatening, Hospitalization, Other)
  Sender: FDA-Public Use
  Company Number: 2004023970

PATIENT
  Age: 35 Year
  Sex: Male

DRUGS (4)
  1. ZITHROMAX [Suspect]
     Indication: PYREXIA
     Dosage: SEE IMAGE
     Route: 048
     Dates: start: 20040301, end: 20040301
  2. ZITHROMAX [Suspect]
     Indication: PYREXIA
     Dosage: SEE IMAGE
     Route: 048
     Dates: start: 20040301, end: 20040301
  3. IMMUNOGLOBULINS (IMMUNOGLBULINS) [Concomitant]
  4. CORTISONE (CORTISONE) [Concomitant]

REACTIONS (4)
  - DYSPNOEA [None]
  - EXANTHEM [None]
  - HAEMORRHAGE [None]
  - HEPATIC ENZYME INCREASED [None]
